FAERS Safety Report 9827828 (Version 2)
Quarter: 2014Q1

REPORT INFORMATION
  Report Type: Report from Study
  Country: IN (occurrence: IN)
  Receive Date: 20140117
  Receipt Date: 20140117
  Transmission Date: 20141002
  Serious: Yes (Hospitalization)
  Sender: FDA-Public Use
  Company Number: IN-BRISTOL-MYERS SQUIBB COMPANY-15357361

PATIENT
  Sex: Female

DRUGS (58)
  1. SUSTIVA [Suspect]
     Indication: ANTIRETROVIRAL THERAPY
     Dates: start: 20070308, end: 20080922
  2. REYATAZ [Suspect]
     Indication: ANTIRETROVIRAL THERAPY
     Dosage: 11AUG^10 TO 08JUL^11, 08-20JUL^11
     Dates: start: 20080922
  3. DIDANOSINE [Suspect]
     Route: 048
     Dates: start: 20120320
  4. COMBIVIR [Suspect]
     Indication: ANTIRETROVIRAL THERAPY
     Dosage: 8MAR07:22SEP08?22SEP08:26MAR10?26MAR10:11AUG10
     Dates: start: 20070308, end: 20100811
  5. VIREAD [Suspect]
     Indication: ANTIRETROVIRAL THERAPY
     Dosage: 22SEP08-26MAR10?26MAR10-11AUG10?RESTARED:8JUL11-20JUL11
     Dates: start: 20080922, end: 20100811
  6. NORVIR [Suspect]
     Indication: ANTIRETROVIRAL THERAPY
     Dosage: 11AUG^10 TO 08JUL^11, 08-20JUL^11
     Dates: start: 20100326
  7. TRUVADA [Suspect]
     Indication: ANTIRETROVIRAL THERAPY
     Dosage: 11AUG^10 TO 08JUL^11, 08-20JUL^11
     Dates: start: 20100811
  8. ABACAVIR [Suspect]
     Dates: start: 20120208, end: 20120224
  9. LAMIVUDINE [Suspect]
     Dates: start: 20120211
  10. OLANZAPINE [Concomitant]
     Indication: MAJOR DEPRESSION
     Dates: start: 20100812
  11. CALAMINE LOTION [Concomitant]
     Indication: PRURITUS
     Dates: start: 20100811
  12. PRAMOXINE [Concomitant]
     Indication: PRURITUS
     Dates: start: 20100811
  13. DOMPERIDONE [Concomitant]
     Indication: VOMITING
     Dosage: TABS;14JULL1-18JUL11?28FEB12-ONGNG
     Dates: start: 20100812
  14. SODIUM CHLORIDE [Concomitant]
     Indication: VOMITING
     Dosage: ALSO 9-11OCT11 WITH INJ 0.9%W/W
     Dates: start: 20100812, end: 20111011
  15. POTASSIUM CHLORIDE [Concomitant]
     Indication: VOMITING
     Dosage: 14JUL11-16JUL11
     Dates: start: 20100812
  16. SODIUM CITRATE [Concomitant]
     Indication: COUGH
     Dosage: 57.03MG FROM 20MAY11-25MAY11;13AUG12-18AUG12:57.03MG FOR COUGH.
     Dates: start: 20100812
  17. SODIUM CITRATE [Concomitant]
     Indication: VOMITING
     Dosage: 57.03MG FROM 20MAY11-25MAY11;13AUG12-18AUG12:57.03MG FOR COUGH.
     Dates: start: 20100812
  18. ESCITALOPRAM [Concomitant]
     Indication: MAJOR DEPRESSION
     Dosage: 24JUN11-27JUN11
     Dates: start: 20100812
  19. PROTEIN [Concomitant]
     Indication: GENERAL PHYSICAL HEALTH DETERIORATION
     Dates: start: 20100811
  20. FAT EMULSION [Concomitant]
     Indication: GENERAL PHYSICAL HEALTH DETERIORATION
     Dates: start: 20100811
  21. CETIRIZINE [Concomitant]
     Indication: PRURITUS
     Dosage: 11AUG2010,12MAR11,14JUL11,11SEP12-13SEP12;?05OCT12:17OCT12; 13AUG12-15AUG12.
     Dates: start: 20060814
  22. CETIRIZINE [Concomitant]
     Indication: COUGH
     Dosage: 11AUG2010,12MAR11,14JUL11,11SEP12-13SEP12;?05OCT12:17OCT12; 13AUG12-15AUG12.
     Dates: start: 20060814
  23. ONDANSETRON [Concomitant]
     Indication: NAUSEA
     Dosage: TABS, 16JUN11-24JUN11, FROM 18JUL^11 ALSO ON 7OCT11.?08FEB12-13FEB12,23FEB12-
     Route: 042
     Dates: start: 20091012
  24. ONDANSETRON [Concomitant]
     Indication: GASTRITIS PROPHYLAXIS
     Dosage: TABS, 16JUN11-24JUN11, FROM 18JUL^11 ALSO ON 7OCT11.?08FEB12-13FEB12,23FEB12-
     Route: 042
     Dates: start: 20091012
  25. VITAMIN A AND D [Concomitant]
     Indication: GENERAL PHYSICAL HEALTH DETERIORATION
     Dosage: 1DF:1000 IU+1000 IU
     Dates: start: 20091230
  26. VITAMIN B1 [Concomitant]
     Indication: GENERAL PHYSICAL HEALTH DETERIORATION
     Dates: start: 20091230
  27. VITAMIN B2 [Concomitant]
     Indication: GENERAL PHYSICAL HEALTH DETERIORATION
     Dates: start: 20091230
  28. IBUPROFEN + ACETAMINOPHEN [Concomitant]
     Indication: PAIN
     Dosage: 1DF:400+325 MG?11SEP12-14SEP12
     Dates: start: 20060814
  29. PETROLEUM JELLY+EMULSIFY WAX+PARAFFIN [Concomitant]
     Indication: PRURITUS
     Dates: start: 20060814
  30. VITAMIN B12 [Concomitant]
     Indication: ANAEMIA
     Dosage: CAP.VITB12 15MCG,FERROUS FUMERATE 0.3G, FOLIC ACID 1.5MG,27OCT10-01FEB11  ALSO 8-12OCT11
     Dates: start: 20100920, end: 20111012
  31. DIMETHICONE [Concomitant]
     Indication: NAUSEA
     Dosage: SYRUP ACTIVATED DIMETHICONE 50MG,MG(OH)2: 250MG,DRIEDAL(OH)3: 250MG/5ML
     Dates: start: 20100920, end: 20100929
  32. DICLOFENAC DIETHYLAMMONIUM [Concomitant]
     Dosage: GEL DICLOFENAC DIETHYLAMMONIUM 1.16 PERCENT
     Dates: start: 20110105, end: 20110113
  33. FOLIC ACID [Concomitant]
     Indication: GENERAL PHYSICAL HEALTH DETERIORATION
     Dosage: TAB,STOPPED ON 01FEB11,RESTARTED ON 21JUN11 8-12OCT11.1MG 7-9OCT11?0.5MG/ML:20MAR12-08APR12
     Dates: start: 20100617, end: 20111012
  34. FERRIC AMMONIUM CITRATE [Concomitant]
     Indication: ANAEMIA
     Dosage: SYP FERRI AMMONIUM CITRATE 160MG?20MAR12-08APR12:
     Dates: start: 20100607, end: 20110303
  35. CYANOCOBALAMIN [Concomitant]
     Indication: ANAEMIA
     Dosage: 20JUN11?7.5MCG:20MAR12-08APR12
     Dates: start: 20100617, end: 20110303
  36. PANTOPRAZOLE [Concomitant]
     Indication: PROPHYLAXIS OF NAUSEA AND VOMITING
     Dosage: 27JUN11-28JUN11 9-11OCT11.?08FEB12-13FEB12?09APR13-17APR13
     Route: 042
     Dates: start: 20100608
  37. PANTOPRAZOLE [Concomitant]
     Indication: GASTRITIS
     Dosage: 27JUN11-28JUN11 9-11OCT11.?08FEB12-13FEB12?09APR13-17APR13
     Route: 042
     Dates: start: 20100608
  38. PANTOPRAZOLE [Concomitant]
     Indication: VOMITING
     Dosage: 27JUN11-28JUN11 9-11OCT11.?08FEB12-13FEB12?09APR13-17APR13
     Route: 042
     Dates: start: 20100608
  39. SULFAMETHOXAZOLE + TRIMETHOPRIM [Concomitant]
     Indication: COUGH
     Dosage: TAB SULFAMETHOXAZOLE 800 MG + TRIMETHOPRIM 160MG,20MAY11-25MAY11 FOR COUGH
     Dates: start: 20100811
  40. SULFAMETHOXAZOLE + TRIMETHOPRIM [Concomitant]
     Indication: PROPHYLAXIS
     Dosage: TAB SULFAMETHOXAZOLE 800 MG + TRIMETHOPRIM 160MG,20MAY11-25MAY11 FOR COUGH
     Dates: start: 20100811
  41. SELENIUM [Concomitant]
     Indication: GENERAL PHYSICAL HEALTH DETERIORATION
     Dates: start: 20100811, end: 20100909
  42. PARACETAMOL TABS [Concomitant]
     Indication: PAIN
     Dosage: 31AUG-04SEP10,20MAY-25MAY2011,9-9SEP11.23-29SEP11.?28AG-31AG12;27OCT-29OCT12,30JL-02AG12
     Dates: start: 20100831, end: 20130127
  43. PARACETAMOL TABS [Concomitant]
     Indication: HEADACHE
     Dosage: 31AUG-04SEP10,20MAY-25MAY2011,9-9SEP11.23-29SEP11.?28AG-31AG12;27OCT-29OCT12,30JL-02AG12
     Dates: start: 20100831, end: 20130127
  44. PARACETAMOL TABS [Concomitant]
     Indication: GENITAL ULCERATION
     Dosage: 31AUG-04SEP10,20MAY-25MAY2011,9-9SEP11.23-29SEP11.?28AG-31AG12;27OCT-29OCT12,30JL-02AG12
     Dates: start: 20100831, end: 20130127
  45. PARACETAMOL TABS [Concomitant]
     Indication: PYREXIA
     Dosage: 31AUG-04SEP10,20MAY-25MAY2011,9-9SEP11.23-29SEP11.?28AG-31AG12;27OCT-29OCT12,30JL-02AG12
     Dates: start: 20100831, end: 20130127
  46. PARACETAMOL TABS [Concomitant]
     Indication: CHEST PAIN
     Dosage: 31AUG-04SEP10,20MAY-25MAY2011,9-9SEP11.23-29SEP11.?28AG-31AG12;27OCT-29OCT12,30JL-02AG12
     Dates: start: 20100831, end: 20130127
  47. CEFIXIME [Concomitant]
     Indication: LIMB INJURY
     Dosage: TABLET
     Dates: start: 20100821, end: 20100824
  48. DICLOFENAC SODIUM [Concomitant]
     Indication: HEAD INJURY
     Dosage: TAB;03MAR12-07MAR12:100MG?29OCT12-03NOV12; 02JUL1205JUL12:100MG?18FEB13
     Dates: start: 20100821, end: 20100824
  49. DICLOFENAC SODIUM [Concomitant]
     Indication: ARTHRALGIA
     Dosage: TAB;03MAR12-07MAR12:100MG?29OCT12-03NOV12; 02JUL1205JUL12:100MG?18FEB13
     Dates: start: 20100821, end: 20100824
  50. DICLOFENAC SODIUM [Concomitant]
     Indication: LIMB INJURY
     Dosage: TAB;03MAR12-07MAR12:100MG?29OCT12-03NOV12; 02JUL1205JUL12:100MG?18FEB13
     Dates: start: 20100821, end: 20100824
  51. DICLOFENAC SODIUM [Concomitant]
     Indication: CHEST PAIN
     Dosage: TAB;03MAR12-07MAR12:100MG?29OCT12-03NOV12; 02JUL1205JUL12:100MG?18FEB13
     Dates: start: 20100821, end: 20100824
  52. SERRATIOPEPTIDASE [Concomitant]
     Indication: INJURY
     Dosage: 15MG FROM:28AUG12-31AUG12 FOR CHEST PAIN.
     Dates: start: 20100821, end: 20100824
  53. DOXYCYCLINE [Concomitant]
     Indication: GENITAL ULCERATION
     Dates: start: 20100831, end: 20100914
  54. VITAMIN A [Concomitant]
     Indication: GENERAL PHYSICAL HEALTH DETERIORATION
  55. VITAMIN D [Concomitant]
     Indication: GENERAL PHYSICAL HEALTH DETERIORATION
  56. METOCLOPRAMIDE [Concomitant]
     Indication: HEAD INJURY
     Route: 042
     Dates: start: 20130218
  57. ACETAZOLAMIDE [Concomitant]
     Indication: HEAD INJURY
     Dates: start: 20130218
  58. HYOSCINE [Concomitant]
     Indication: ABDOMINAL PAIN
     Dates: start: 20121203

REACTIONS (2)
  - Lower respiratory tract infection [Recovered/Resolved]
  - Anaemia [Recovered/Resolved]
